FAERS Safety Report 6193939-0 (Version None)
Quarter: 2009Q2

REPORT INFORMATION
  Report Type: 
  Country: None (occurrence: None)
  Receive Date: 20090518
  Receipt Date: 20090507
  Transmission Date: 20091009
  Serious: Yes (Hospitalization)
  Sender: FDA-Public Use
  Company Number: PHEH2009US04690

PATIENT
  Sex: Female

DRUGS (1)
  1. ZADITOR [Suspect]
     Indication: PRURITUS
     Dosage: UNK

REACTIONS (3)
  - DIZZINESS [None]
  - EYE IRRITATION [None]
  - HEADACHE [None]
